FAERS Safety Report 7380402-4 (Version None)
Quarter: 2011Q1

REPORT INFORMATION
  Report Type: 
  Country: None (occurrence: None)
  Receive Date: 20110329
  Receipt Date: 20110315
  Transmission Date: 20110831
  Serious: Yes (Hospitalization)
  Sender: FDA-Public Use
  Company Number: US-ROCHE-756963

PATIENT
  Age: 53 Year
  Sex: Female
  Weight: 61.8 kg

DRUGS (5)
  1. XELODA [Suspect]
     Indication: GASTRIC CANCER
     Dosage: TAKEN IN THE MORNING AND EVENING
     Route: 048
     Dates: start: 20110113, end: 20110127
  2. DEXAMETHASONE [Concomitant]
     Route: 042
     Dates: start: 20110113, end: 20110113
  3. ONDANSETRON [Concomitant]
     Route: 042
     Dates: start: 20110113, end: 20110113
  4. OXALIPLATIN [Concomitant]
     Indication: GASTRIC CANCER
     Route: 042
     Dates: start: 20110113, end: 20110113
  5. EPIRUBICIN [Concomitant]
     Indication: GASTRIC CANCER
     Route: 042
     Dates: start: 20110113, end: 20110113

REACTIONS (2)
  - LEUKOENCEPHALOPATHY [None]
  - ASTHENIA [None]
